FAERS Safety Report 14749001 (Version 1)
Quarter: 2018Q2

REPORT INFORMATION
  Report Type: Spontaneous
  Country: US (occurrence: US)
  Receive Date: 20180411
  Receipt Date: 20180411
  Transmission Date: 20180711
  Serious: No
  Sender: FDA-Public Use
  Company Number: US-AMGEN-USASP2018007679

PATIENT
  Age: 64 Year
  Sex: Female

DRUGS (2)
  1. PROLIA [Suspect]
     Active Substance: DENOSUMAB
     Indication: OSTEOPOROSIS
     Dosage: 60 MG, Q6MO
     Route: 065
     Dates: start: 2014
  2. PROLIA [Suspect]
     Active Substance: DENOSUMAB
     Dosage: 60 MG, Q6MO
     Route: 065
     Dates: start: 201710

REACTIONS (6)
  - Back pain [Recovering/Resolving]
  - Arthralgia [Not Recovered/Not Resolved]
  - Bone pain [Not Recovered/Not Resolved]
  - Groin pain [Unknown]
  - Mobility decreased [Unknown]
  - Pain in extremity [Not Recovered/Not Resolved]

NARRATIVE: CASE EVENT DATE: 2015
